FAERS Safety Report 24032414 (Version 1)
Quarter: 2024Q3

REPORT INFORMATION
  Report Type: Spontaneous
  Country: US (occurrence: US)
  Receive Date: 20240701
  Receipt Date: 20240701
  Transmission Date: 20241016
  Serious: No
  Sender: TEVA
  Company Number: US-TEVA-VS-3212016

PATIENT
  Sex: Female

DRUGS (12)
  1. PENICILLIN [Suspect]
     Active Substance: PENICILLIN
     Indication: Product used for unknown indication
     Route: 065
  2. XOLAIR [Concomitant]
     Active Substance: OMALIZUMAB
  3. PEPCID AC [Concomitant]
     Active Substance: FAMOTIDINE
  4. MOUNJARO [Concomitant]
     Active Substance: TIRZEPATIDE
  5. HYDROCHLOROTHIAZIDE\IRBESARTAN [Concomitant]
     Active Substance: HYDROCHLOROTHIAZIDE\IRBESARTAN
  6. METOPROLOL SUCCINATE [Concomitant]
     Active Substance: METOPROLOL SUCCINATE
  7. POTASSIUM [Concomitant]
     Active Substance: POTASSIUM
  8. VITAMINS [Concomitant]
     Active Substance: VITAMINS
  9. CALCIUM\ERGOCALCIFEROL [Concomitant]
     Active Substance: CALCIUM\ERGOCALCIFEROL
  10. TRETINOIN [Concomitant]
     Active Substance: TRETINOIN
  11. ELIQUIS [Concomitant]
     Active Substance: APIXABAN
  12. ZYRTEC [Concomitant]
     Active Substance: CETIRIZINE HYDROCHLORIDE

REACTIONS (1)
  - Rash [Not Recovered/Not Resolved]

NARRATIVE: CASE EVENT DATE: 20190101
